FAERS Safety Report 26166243 (Version 1)
Quarter: 2025Q4

REPORT INFORMATION
  Report Type: Report from Study
  Country: US (occurrence: US)
  Receive Date: 20251216
  Receipt Date: 20251216
  Transmission Date: 20260119
  Serious: Yes (Hospitalization)
  Sender: ABBVIE
  Company Number: US-ABBVIE-6565573

PATIENT
  Age: 80 Year
  Sex: Male

DRUGS (1)
  1. VENCLEXTA [Suspect]
     Active Substance: VENETOCLAX
     Indication: Acute myeloid leukaemia
     Dosage: END DATE : 2025
     Route: 048
     Dates: start: 20251128

REACTIONS (7)
  - Hospitalisation [Unknown]
  - Nausea [Unknown]
  - Fatigue [Unknown]
  - Infection [Unknown]
  - Haemoglobin abnormal [Unknown]
  - Haemoglobin abnormal [Unknown]
  - Blood bilirubin abnormal [Unknown]

NARRATIVE: CASE EVENT DATE: 20250101
